FAERS Safety Report 6987419-X (Version None)
Quarter: 2010Q3

REPORT INFORMATION
  Report Type: 
  Country: None (occurrence: None)
  Receive Date: 20100916
  Receipt Date: 20100908
  Transmission Date: 20110219
  Serious: Yes (Hospitalization)
  Sender: FDA-Public Use
  Company Number: NI-BRISTOL-MYERS SQUIBB COMPANY-15280225

PATIENT
  Age: 46 Year
  Sex: Female

DRUGS (2)
  1. COAPROVEL [Suspect]
     Indication: HYPERTENSION
     Dosage: 1DF: 300/12.5MG
     Route: 048
     Dates: start: 20100201, end: 20100201
  2. NORVASC [Suspect]
     Indication: HYPERTENSION
     Route: 048
     Dates: start: 20091101, end: 20100201

REACTIONS (2)
  - DEHYDRATION [None]
  - SYNCOPE [None]
